FAERS Safety Report 4578898-6 (Version None)
Quarter: 2005Q1

REPORT INFORMATION
  Report Type: 
  Country: None (occurrence: None)
  Receive Date: 20050211
  Receipt Date: 20050202
  Transmission Date: 20050727
  Serious: Yes (Hospitalization, Other)
  Sender: FDA-Public Use
  Company Number: JP-ABBOTT-05P-087-0289603-00

PATIENT
  Age: 66 Year
  Sex: Male

DRUGS (16)
  1. CLARITH [Suspect]
     Indication: DRUG USE FOR UNKNOWN INDICATION
     Route: 048
     Dates: end: 20040830
  2. CLARITH [Suspect]
     Route: 048
     Dates: start: 20040813, end: 20040830
  3. LANSOPRAZOLE [Suspect]
     Indication: PROPHYLAXIS AGAINST GASTROINTESTINAL ULCER
     Route: 048
     Dates: start: 20040813, end: 20040830
  4. SODIUM ALGINATE [Suspect]
     Indication: DRUG USE FOR UNKNOWN INDICATION
     Route: 048
  5. WARFARIN SODIUM [Suspect]
     Indication: AORTIC VALVE REPLACEMENT
     Route: 048
     Dates: start: 20040816
  6. FUROSEMIDE [Suspect]
     Indication: CARDIAC FAILURE CONGESTIVE
     Route: 048
     Dates: start: 20040816
  7. FERROUS CITRATE [Suspect]
     Indication: ANAEMIA
     Route: 048
     Dates: start: 20040816
  8. ZOPICLONE [Suspect]
     Indication: INSOMNIA
     Route: 048
     Dates: start: 20040816
  9. METHYLPREDNISOLONE SODIUM SUCCINATE [Suspect]
     Indication: BEHCET'S SYNDROME
     Dates: start: 20040818
  10. PREDNISOLONE [Suspect]
     Indication: BEHCET'S SYNDROME
     Dates: start: 20040818
  11. PREDNISOLONE [Suspect]
     Route: 048
     Dates: start: 20040101
  12. MAGNESIUM OXIDE [Suspect]
     Indication: CONSTIPATION
     Route: 048
     Dates: start: 20040817
  13. TAMSULOSIN HYDROCHLORIDE [Suspect]
     Indication: PROSTATITIS
     Route: 048
     Dates: start: 20040819
  14. EVIPROSTAT [Suspect]
     Indication: PROSTATITIS
     Route: 048
     Dates: start: 20040819
  15. CEFPODOXIME PROXETIL [Suspect]
     Indication: URINARY TRACT INFECTION
     Route: 048
     Dates: start: 20040817, end: 20040824
  16. ALENDRONATE SODIUM [Suspect]
     Indication: OSTEOPOROSIS
     Route: 048
     Dates: start: 20040825, end: 20040830

REACTIONS (9)
  - ANAEMIA [None]
  - AORTIC VALVE REPLACEMENT [None]
  - C-REACTIVE PROTEIN INCREASED [None]
  - CARDIAC FAILURE CONGESTIVE [None]
  - CONSTIPATION [None]
  - INSOMNIA [None]
  - OSTEOPOROSIS [None]
  - THROMBOCYTOPENIA [None]
  - URINARY TRACT INFECTION [None]
